FAERS Safety Report 6137457-4 (Version None)
Quarter: 2009Q1

REPORT INFORMATION
  Report Type: 
  Country: None (occurrence: None)
  Receive Date: 20090326
  Receipt Date: 20090316
  Transmission Date: 20090719
  Serious: Yes (Other)
  Sender: FDA-Public Use
  Company Number: 2008SP022417

PATIENT
  Age: 16 Year
  Sex: Male

DRUGS (2)
  1. DESLORATADINE [Suspect]
     Indication: MULTIPLE ALLERGIES
     Dosage: 5 MG;PRN;PO ; 5 MG;QD
     Route: 048
     Dates: start: 20080101, end: 20081101
  2. DESLORATADINE [Suspect]
     Indication: MULTIPLE ALLERGIES
     Dosage: 5 MG;PRN;PO ; 5 MG;QD
     Route: 048
     Dates: start: 20020101

REACTIONS (6)
  - ACCIDENT [None]
  - COGNITIVE DISORDER [None]
  - FEMUR FRACTURE [None]
  - LETHARGY [None]
  - TRAUMATIC BRAIN INJURY [None]
  - VISUAL ACUITY REDUCED [None]
